FAERS Safety Report 6968325-3 (Version None)
Quarter: 2010Q3

REPORT INFORMATION
  Report Type: 
  Country: None (occurrence: None)
  Receive Date: 20100907
  Receipt Date: 20100827
  Transmission Date: 20110219
  Serious: Yes (Other)
  Sender: FDA-Public Use
  Company Number: US-JNJFOC-20100900259

PATIENT
  Age: 39 Year
  Sex: Male

DRUGS (2)
  1. REMICADE [Suspect]
     Indication: PSORIASIS
  2. REMICADE [Suspect]
     Indication: PSORIATIC ARTHROPATHY

REACTIONS (3)
  - CRANIAL NERVE DISORDER [None]
  - MULTIPLE SCLEROSIS RELAPSE [None]
  - PSORIASIS [None]
